FAERS Safety Report 6276466-1 (Version None)
Quarter: 2009Q3

REPORT INFORMATION
  Report Type: 
  Country: None (occurrence: None)
  Receive Date: 20090722
  Receipt Date: 20080619
  Transmission Date: 20100115
  Serious: Yes (Disabling)
  Sender: FDA-Public Use
  Company Number: MX-PFIZER INC-2008053362

PATIENT
  Age: 70 Year

DRUGS (1)
  1. EPAMIN [Suspect]
     Indication: EPILEPSY
     Dates: start: 19680101, end: 19680101

REACTIONS (1)
  - APHASIA [None]
